FAERS Safety Report 23634363 (Version 1)
Quarter: 2024Q1

REPORT INFORMATION
  Report Type: Spontaneous
  Country: US (occurrence: US)
  Receive Date: 20240314
  Receipt Date: 20240314
  Transmission Date: 20240410
  Serious: Yes (Other)
  Sender: FDA-Public Use
  Company Number: US-SA-SAC20240313001340

PATIENT
  Age: 81 Year
  Sex: Female

DRUGS (1)
  1. DUPIXENT [Suspect]
     Active Substance: DUPILUMAB
     Indication: Neurodermatitis
     Dosage: UNK
     Route: 058
     Dates: start: 20240214, end: 20240214

REACTIONS (6)
  - Hip arthroplasty [Unknown]
  - Contusion [Unknown]
  - Peripheral swelling [Unknown]
  - Blister [Unknown]
  - Erythema [Unknown]
  - Nodule [Unknown]

NARRATIVE: CASE EVENT DATE: 20240101
